FAERS Safety Report 8479928-1 (Version None)
Quarter: 2012Q2

REPORT INFORMATION
  Report Type: 
  Country: None (occurrence: None)
  Receive Date: 20120629
  Receipt Date: 20120620
  Transmission Date: 20120825
  Serious: Yes (Hospitalization, Other)
  Sender: FDA-Public Use
  Company Number: US-ASTRAZENECA-2008UW25878

PATIENT
  Age: 55 Year
  Sex: Male

DRUGS (2)
  1. SEROQUEL [Suspect]
     Route: 048
     Dates: start: 20080805, end: 20081019
  2. NEXIUM [Suspect]
     Route: 048

REACTIONS (8)
  - ROAD TRAFFIC ACCIDENT [None]
  - ANXIETY [None]
  - PAIN [None]
  - FEELING ABNORMAL [None]
  - AMNESIA [None]
  - BRAIN INJURY [None]
  - CONVULSION [None]
  - DEPRESSION [None]
